FAERS Safety Report 13474242 (Version 3)
Quarter: 2017Q2

REPORT INFORMATION
  Report Type: Spontaneous
  Country: IT (occurrence: IT)
  Receive Date: 20170424
  Receipt Date: 20170512
  Transmission Date: 20170830
  Serious: Yes (Hospitalization)
  Sender: FDA-Public Use
  Company Number: IT-ELI_LILLY_AND_COMPANY-IT201704007359

PATIENT
  Age: 40 Year
  Sex: Female
  Weight: 64 kg

DRUGS (4)
  1. ERBITUX [Suspect]
     Active Substance: CETUXIMAB
     Indication: ADENOCARCINOMA OF COLON
     Dosage: 330 MG, CYCLICAL
     Route: 065
     Dates: start: 20151126, end: 20160303
  2. FLUOROURACILE [Suspect]
     Active Substance: FLUOROURACIL
     Dosage: 4000 MG, CYCLICAL
     Route: 042
     Dates: start: 20151126, end: 20160303
  3. LEVOFOLINIC ACID [Concomitant]
     Active Substance: LEVOLEUCOVORIN
     Indication: COLON CANCER
     Dosage: 340 MG, UNKNOWN
     Route: 042
     Dates: start: 20151126
  4. FLUOROURACILE [Suspect]
     Active Substance: FLUOROURACIL
     Indication: ADENOCARCINOMA OF COLON
     Dosage: 680 MG, UNKNOWN
     Route: 040
     Dates: start: 20151126

REACTIONS (1)
  - Presyncope [Recovering/Resolving]

NARRATIVE: CASE EVENT DATE: 20160108
